FAERS Safety Report 5640814-3 (Version None)
Quarter: 2008Q1

REPORT INFORMATION
  Report Type: 
  Country: None (occurrence: None)
  Receive Date: 20080225
  Receipt Date: 20080212
  Transmission Date: 20080703
  Serious: Yes (Other)
  Sender: FDA-Public Use
  Company Number: A0711011A

PATIENT
  Sex: Male

DRUGS (1)
  1. IMITREX [Suspect]
     Indication: MIGRAINE

REACTIONS (4)
  - DEVICE MALFUNCTION [None]
  - DRUG INEFFECTIVE [None]
  - INJECTION SITE VESICLES [None]
  - PHARMACEUTICAL PRODUCT COMPLAINT [None]
